FAERS Safety Report 5538080-2 (Version None)
Quarter: 2007Q4

REPORT INFORMATION
  Report Type: 
  Country: None (occurrence: None)
  Receive Date: 20071207
  Receipt Date: 20071204
  Transmission Date: 20080405
  Serious: No
  Sender: FDA-Public Use
  Company Number: US-BOEHRINGER INGELHEIM PHARMACEUTICALS, INC.-2006-BP-08959BP

PATIENT
  Sex: Female
  Weight: 71.67 kg

DRUGS (4)
  1. PERSANTINE [Suspect]
     Indication: CARDIAC STRESS TEST
     Dates: start: 20060718
  2. PERSANTINE [Suspect]
     Indication: CHEST PAIN
     Dates: start: 20060719
  3. LIPITOR [Concomitant]
  4. CARDIOLITE [Concomitant]
     Indication: CARDIAC STRESS TEST
     Dates: start: 20060718

REACTIONS (4)
  - DYSGEUSIA [None]
  - LIP SWELLING [None]
  - OEDEMA MOUTH [None]
  - ORAL PRURITUS [None]
